FAERS Safety Report 8007989-2 (Version None)
Quarter: 2011Q4

REPORT INFORMATION
  Report Type: 
  Country: None (occurrence: None)
  Receive Date: 20111227
  Receipt Date: 20111219
  Transmission Date: 20120403
  Serious: Yes (Hospitalization)
  Sender: FDA-Public Use
  Company Number: PHHY2011FR105836

PATIENT
  Sex: Female
  Weight: 75 kg

DRUGS (4)
  1. GILENYA [Suspect]
     Indication: MULTIPLE SCLEROSIS
     Dosage: 0.5 MG, QD
     Route: 048
     Dates: start: 20111109, end: 20111125
  2. PRAVASTATIN [Concomitant]
     Indication: HYPERCHOLESTEROLAEMIA
     Dates: start: 20060101
  3. ESOMEPRAZOLE [Concomitant]
     Indication: GASTRITIS
     Dates: start: 20060101
  4. BROMAZEPAM [Concomitant]
     Indication: ANXIETY
     Dates: start: 20060101

REACTIONS (4)
  - ABDOMINAL PAIN [None]
  - GASTROENTERITIS [None]
  - DYSURIA [None]
  - DIARRHOEA [None]
